FAERS Safety Report 9295889 (Version 1)
Quarter: 2013Q2

REPORT INFORMATION
  Report Type: Spontaneous
  Country: US (occurrence: None)
  Receive Date: 20130516
  Receipt Date: 20130516
  Transmission Date: 20140414
  Serious: Yes (Hospitalization)
  Sender: FDA-Public Use
  Company Number: None

PATIENT
  Age: 85 Year
  Sex: Male
  Weight: 61.8 kg

DRUGS (1)
  1. BOSULIF [Suspect]
     Indication: CHRONIC MYELOID LEUKAEMIA
     Route: 048
     Dates: start: 20130313, end: 20130512

REACTIONS (13)
  - Dysphagia [None]
  - Aphagia [None]
  - Vomiting [None]
  - Sensory disturbance [None]
  - Gastric ulcer [None]
  - Gastritis erosive [None]
  - Eschar [None]
  - Erosive duodenitis [None]
  - Duodenal ulcer [None]
  - Diarrhoea [None]
  - Thrombocytopenia [None]
  - Cardiac failure congestive [None]
  - Atrial fibrillation [None]
